FAERS Safety Report 5129758-3 (Version None)
Quarter: 2006Q4

REPORT INFORMATION
  Report Type: 
  Country: None (occurrence: None)
  Receive Date: 20061018
  Receipt Date: 20060717
  Transmission Date: 20070319
  Serious: No
  Sender: FDA-Public Use
  Company Number: US-GLAXOSMITHKLINE-A0612515A

PATIENT
  Age: 39 Year
  Sex: Male

DRUGS (7)
  1. LEXIVA [Suspect]
     Indication: HIV INFECTION
     Dosage: 2TAB PER DAY
     Route: 048
  2. LITHIUM CARBONATE [Suspect]
  3. NORVIR [Suspect]
  4. TRUVADA [Suspect]
  5. XANAX [Concomitant]
  6. KLONOPIN [Concomitant]
  7. OXYCODONE HCL [Concomitant]

REACTIONS (3)
  - NAUSEA [None]
  - VOMITING [None]
  - WEIGHT DECREASED [None]
